FAERS Safety Report 4604162-2 (Version None)
Quarter: 2005Q1

REPORT INFORMATION
  Report Type: 
  Country: None (occurrence: None)
  Receive Date: 20050308
  Receipt Date: 20050308
  Transmission Date: 20050727
  Serious: No
  Sender: FDA-Public Use
  Company Number: None

PATIENT
  Age: 63 Year
  Sex: Male
  Weight: 134.1 kg

DRUGS (1)
  1. ROSIGLITAZONE  2MG [Suspect]
     Indication: DIABETES MELLITUS NON-INSULIN-DEPENDENT
     Dosage: 2MG PO QD
     Route: 048
     Dates: start: 20040101, end: 20040901

REACTIONS (1)
  - MYALGIA [None]
